FAERS Safety Report 14493098 (Version 1)
Quarter: 2018Q1

REPORT INFORMATION
  Report Type: Spontaneous
  Country: US (occurrence: US)
  Receive Date: 20180205
  Receipt Date: 20180205
  Transmission Date: 20180509
  Serious: Yes (Hospitalization)
  Sender: FDA-Public Use
  Company Number: None

PATIENT

DRUGS (1)
  1. ACETAMINOPHEN. [Suspect]
     Active Substance: ACETAMINOPHEN

REACTIONS (6)
  - Nausea [None]
  - Vomiting [None]
  - Intentional product use issue [None]
  - Confusional state [None]
  - Abdominal pain upper [None]
  - Hypotension [None]
